FAERS Safety Report 18971347 (Version 2)
Quarter: 2022Q2

REPORT INFORMATION
  Report Type: Report from Study
  Country: CA (occurrence: CA)
  Receive Date: 20210305
  Receipt Date: 20220404
  Transmission Date: 20220721
  Serious: Yes (Other)
  Sender: FDA-Public Use
  Company Number: CA-BAUSCH-BL-2021-006682

PATIENT
  Age: 53 Year
  Sex: Male

DRUGS (8)
  1. METFORMIN [Suspect]
     Active Substance: METFORMIN HYDROCHLORIDE
     Indication: Product used for unknown indication
     Route: 048
  2. METFORMIN [Suspect]
     Active Substance: METFORMIN HYDROCHLORIDE
     Route: 048
  3. COSENTYX [Suspect]
     Active Substance: SECUKINUMAB
     Indication: Psoriasis
     Route: 058
  4. COSENTYX [Suspect]
     Active Substance: SECUKINUMAB
     Route: 058
  5. COSENTYX [Suspect]
     Active Substance: SECUKINUMAB
     Route: 058
  6. GLYBURIDE [Concomitant]
     Active Substance: GLYBURIDE
     Indication: Product used for unknown indication
     Route: 048
  7. SULFASALAZINE [Concomitant]
     Active Substance: SULFASALAZINE
     Indication: Product used for unknown indication
     Route: 048
  8. HUMIRA [Concomitant]
     Active Substance: ADALIMUMAB
     Indication: Product used for unknown indication
     Route: 058

REACTIONS (17)
  - Cellulitis [Unknown]
  - Discomfort [Unknown]
  - Gastric disorder [Unknown]
  - Lichen sclerosus [Unknown]
  - Pain of skin [Unknown]
  - Psoriasis [Unknown]
  - Quality of life decreased [Unknown]
  - Self-consciousness [Unknown]
  - Sexual dysfunction [Unknown]
  - Skin infection [Unknown]
  - Faeces soft [Unknown]
  - Dyspepsia [Unknown]
  - Erythema [Unknown]
  - Pruritus [Unknown]
  - Diarrhoea [Unknown]
  - Inappropriate schedule of product administration [Unknown]
  - Therapeutic product effect incomplete [Unknown]
